FAERS Safety Report 8289128-6 (Version None)
Quarter: 2012Q2

REPORT INFORMATION
  Report Type: 
  Country: None (occurrence: None)
  Receive Date: 20120417
  Receipt Date: 20120410
  Transmission Date: 20120825
  Serious: Yes (Death)
  Sender: FDA-Public Use
  Company Number: US-JNJFOC-20120405873

PATIENT
  Sex: Male

DRUGS (58)
  1. DOXORUBICIN HCL [Suspect]
     Route: 042
  2. BLEOMYCIN SULFATE [Suspect]
     Route: 042
  3. ETOPOSIDE [Suspect]
     Route: 042
  4. CYCLOPHOSPHAMIDE [Suspect]
     Route: 042
  5. CYCLOPHOSPHAMIDE [Suspect]
     Route: 042
  6. VINCRISTINE [Suspect]
     Route: 042
  7. VINCRISTINE [Suspect]
     Route: 042
  8. VINCRISTINE [Suspect]
     Route: 042
  9. PROCARBAZINE HYDROCHLORIDE [Suspect]
     Route: 048
  10. PROCARBAZINE HYDROCHLORIDE [Suspect]
     Route: 048
  11. DOXORUBICIN HCL [Suspect]
     Route: 042
  12. BLEOMYCIN SULFATE [Suspect]
     Route: 042
  13. ETOPOSIDE [Suspect]
     Route: 042
  14. CYCLOPHOSPHAMIDE [Suspect]
     Route: 042
  15. VINCRISTINE [Suspect]
     Route: 042
  16. VINCRISTINE [Suspect]
     Route: 042
  17. PREDNISONE TAB [Suspect]
     Route: 048
  18. BLEOMYCIN SULFATE [Suspect]
     Route: 042
  19. ETOPOSIDE [Suspect]
     Route: 042
  20. VINCRISTINE [Suspect]
     Route: 042
  21. PROCARBAZINE HYDROCHLORIDE [Suspect]
     Indication: HODGKIN'S DISEASE STAGE III
     Route: 048
  22. PROCARBAZINE HYDROCHLORIDE [Suspect]
     Route: 048
  23. DOXORUBICIN HCL [Suspect]
     Route: 042
  24. BLEOMYCIN SULFATE [Suspect]
     Route: 042
  25. BLEOMYCIN SULFATE [Suspect]
     Route: 042
  26. VINCRISTINE [Suspect]
     Route: 042
  27. PROCARBAZINE HYDROCHLORIDE [Suspect]
     Route: 048
  28. PROCARBAZINE HYDROCHLORIDE [Suspect]
     Route: 048
  29. NEUPOGEN [Concomitant]
     Indication: NEUTROPENIA
     Route: 058
  30. DOXORUBICIN HCL [Suspect]
     Indication: HODGKIN'S DISEASE STAGE III
     Route: 042
  31. DOXORUBICIN HCL [Suspect]
     Route: 042
  32. DOXORUBICIN HCL [Suspect]
     Route: 042
  33. ETOPOSIDE [Suspect]
     Route: 042
  34. CYCLOPHOSPHAMIDE [Suspect]
     Route: 042
  35. PREDNISONE TAB [Suspect]
     Indication: HODGKIN'S DISEASE STAGE III
     Route: 048
  36. PREDNISONE TAB [Suspect]
     Route: 048
  37. PROCARBAZINE HYDROCHLORIDE [Suspect]
     Route: 048
  38. RADIOTHERAPY [Suspect]
     Indication: HODGKIN'S DISEASE STAGE III
     Route: 065
  39. DOXORUBICIN HCL [Suspect]
     Route: 042
  40. BLEOMYCIN SULFATE [Suspect]
     Indication: HODGKIN'S DISEASE STAGE III
     Route: 042
  41. BLEOMYCIN SULFATE [Suspect]
     Route: 042
  42. BLEOMYCIN SULFATE [Suspect]
     Route: 042
  43. ETOPOSIDE [Suspect]
     Indication: HODGKIN'S DISEASE STAGE III
     Route: 042
  44. ETOPOSIDE [Suspect]
     Route: 042
  45. CYCLOPHOSPHAMIDE [Suspect]
     Indication: HODGKIN'S DISEASE STAGE III
     Route: 042
  46. CYCLOPHOSPHAMIDE [Suspect]
     Route: 042
  47. PREDNISONE TAB [Suspect]
     Route: 048
  48. PREDNISONE TAB [Suspect]
     Route: 048
  49. ETOPOSIDE [Suspect]
     Route: 042
  50. PREDNISONE TAB [Suspect]
     Route: 048
  51. DOXORUBICIN HCL [Suspect]
     Route: 042
  52. ETOPOSIDE [Suspect]
     Route: 042
  53. CYCLOPHOSPHAMIDE [Suspect]
     Route: 042
  54. CYCLOPHOSPHAMIDE [Suspect]
     Route: 042
  55. VINCRISTINE [Suspect]
     Indication: HODGKIN'S DISEASE STAGE III
     Route: 042
  56. PREDNISONE TAB [Suspect]
     Route: 048
  57. PREDNISONE TAB [Suspect]
     Route: 048
  58. PROCARBAZINE HYDROCHLORIDE [Suspect]
     Route: 048

REACTIONS (1)
  - MYELODYSPLASTIC SYNDROME [None]
